FAERS Safety Report 5850414-8 (Version None)
Quarter: 2008Q3

REPORT INFORMATION
  Report Type: 
  Country: None (occurrence: None)
  Receive Date: 20080818
  Receipt Date: 20080806
  Transmission Date: 20090109
  Serious: Yes (Hospitalization)
  Sender: FDA-Public Use
  Company Number: 2008BI018003

PATIENT
  Age: 66 Year
  Sex: Female

DRUGS (24)
  1. AVONEX [Suspect]
     Indication: MULTIPLE SCLEROSIS
     Dosage: 30 UG; QW; IM
     Route: 030
     Dates: start: 20080201
  2. FLONASE [Concomitant]
  3. LOPRESSOR [Concomitant]
  4. SANCTURA [Concomitant]
  5. FLOMAX [Concomitant]
  6. PROTONIX [Concomitant]
  7. CLARITIN [Concomitant]
  8. LIPITOR [Concomitant]
  9. SINGULAIR [Concomitant]
  10. LASIX [Concomitant]
  11. CELEBREX [Concomitant]
  12. ANTIVERT [Concomitant]
  13. CYMBALTA [Concomitant]
  14. VITAMIN TAB [Concomitant]
  15. NORCO  10 [Concomitant]
  16. IMIPENEM [Concomitant]
  17. ALBUTEROL [Concomitant]
  18. ATROVENT [Concomitant]
  19. REMERON [Concomitant]
  20. XANAX [Concomitant]
  21. PHENERGAN HCL [Concomitant]
  22. BETA BLOCKER [Concomitant]
  23. PAIN MEDICATION [Concomitant]
  24. OXYGEN [Concomitant]

REACTIONS (17)
  - ALOPECIA [None]
  - ANAEMIA [None]
  - ASTHENIA [None]
  - ATELECTASIS [None]
  - DEHYDRATION [None]
  - DYSPHONIA [None]
  - EYE INJURY [None]
  - FAILURE TO THRIVE [None]
  - MALNUTRITION [None]
  - OEDEMA PERIPHERAL [None]
  - ORAL MUCOSAL DISCOLOURATION [None]
  - OROPHARYNGEAL PAIN [None]
  - PERIORBITAL HAEMATOMA [None]
  - PNEUMONIA [None]
  - TACHYCARDIA [None]
  - TONGUE DISORDER [None]
  - WEIGHT DECREASED [None]
